FAERS Safety Report 5326344-7 (Version None)
Quarter: 2007Q2

REPORT INFORMATION
  Report Type: 
  Country: None (occurrence: None)
  Receive Date: 20070516
  Receipt Date: 20070514
  Transmission Date: 20071010
  Serious: Yes (Hospitalization)
  Sender: FDA-Public Use
  Company Number: A0651227A

PATIENT
  Age: 36 Year
  Sex: Male

DRUGS (2)
  1. LAMICTAL [Suspect]
     Indication: BIPOLAR DISORDER
     Dosage: 100MG PER DAY
     Route: 048
     Dates: start: 20070401, end: 20070501
  2. LEXAPRO [Concomitant]

REACTIONS (3)
  - ENDOCARDITIS [None]
  - MYOCARDITIS [None]
  - PULMONARY EMBOLISM [None]
